FAERS Safety Report 17114412 (Version 2)
Quarter: 2019Q4

REPORT INFORMATION
  Report Type: Spontaneous
  Country: IT (occurrence: IT)
  Receive Date: 20191205
  Receipt Date: 20191216
  Transmission Date: 20200122
  Serious: Yes (Other)
  Sender: FDA-Public Use
  Company Number: IT-LUPIN PHARMACEUTICALS INC.-2019-07952

PATIENT
  Age: 68 Year
  Sex: Female

DRUGS (2)
  1. AZACITIDINE. [Suspect]
     Active Substance: AZACITIDINE
     Indication: MYELODYSPLASTIC SYNDROME
     Dosage: 75 MILLIGRAM, SM, QD (28-DAY CYCLES)
     Route: 058
  2. DECITABINE. [Suspect]
     Active Substance: DECITABINE
     Indication: MYELODYSPLASTIC SYNDROME
     Dosage: 20 MG/SM FOR 5 DAYS EVERY 28 DAYS
     Route: 065

REACTIONS (4)
  - Treatment failure [Unknown]
  - Disease progression [Unknown]
  - Acute myeloid leukaemia [Unknown]
  - Therapy partial responder [Unknown]
